FAERS Safety Report 6868817-1 (Version None)
Quarter: 2010Q3

REPORT INFORMATION
  Report Type: 
  Country: None (occurrence: None)
  Receive Date: 20100722
  Receipt Date: 20080711
  Transmission Date: 20110219
  Serious: No
  Sender: FDA-Public Use
  Company Number: US-PFIZER INC-2008051258

PATIENT

DRUGS (1)
  1. CHANTIX [Suspect]
     Dosage: TOTAL DOSE: 1 PILL
     Dates: start: 20080211, end: 20080211

REACTIONS (3)
  - DIZZINESS [None]
  - MALAISE [None]
  - NAUSEA [None]
